FAERS Safety Report 5093351-1 (Version None)
Quarter: 2006Q3

REPORT INFORMATION
  Report Type: 
  Country: None (occurrence: None)
  Receive Date: 20060828
  Receipt Date: 20060811
  Transmission Date: 20061208
  Serious: Yes (Death)
  Sender: FDA-Public Use
  Company Number: GXKR2006JP04700

PATIENT
  Age: 55 Year
  Sex: Male

DRUGS (4)
  1. RIFAMPICIN [Suspect]
  2. ISONIAZID [Concomitant]
  3. PYRAZINAMIDE [Concomitant]
  4. ETHAMBUTOL (ETHAMBUTOL) [Concomitant]

REACTIONS (2)
  - CONDITION AGGRAVATED [None]
  - PULMONARY TUBERCULOSIS [None]
